FAERS Safety Report 7369763-X (Version None)
Quarter: 2011Q1

REPORT INFORMATION
  Report Type: 
  Country: None (occurrence: None)
  Receive Date: 20110323
  Receipt Date: 20110314
  Transmission Date: 20110831
  Serious: Yes (Hospitalization, Other)
  Sender: FDA-Public Use
  Company Number: US-ASTRAZENECA-2011SE05809

PATIENT
  Age: 58 Year
  Sex: Female
  Weight: 72.6 kg

DRUGS (11)
  1. STEROIDS [Suspect]
     Route: 065
  2. FOLIC ACID [Concomitant]
  3. SEROQUEL [Suspect]
     Indication: SLEEP DISORDER
     Route: 048
  4. KEPPRA [Concomitant]
  5. KLONOPIN [Concomitant]
  6. LIPITOR [Concomitant]
  7. RESTORIL [Concomitant]
  8. ATIVAN [Concomitant]
  9. ALLEGRA [Concomitant]
  10. ASPIRIN [Concomitant]
  11. PLAVIX [Concomitant]

REACTIONS (7)
  - RECURRENT CANCER [None]
  - LUNG CARCINOMA CELL TYPE UNSPECIFIED STAGE III [None]
  - MYOCARDIAL INFARCTION [None]
  - CEREBROVASCULAR ACCIDENT [None]
  - LUNG CANCER METASTATIC [None]
  - METASTASES TO CENTRAL NERVOUS SYSTEM [None]
  - WEIGHT INCREASED [None]
